FAERS Safety Report 7406426-6 (Version None)
Quarter: 2011Q2

REPORT INFORMATION
  Report Type: 
  Country: None (occurrence: None)
  Receive Date: 20110411
  Receipt Date: 20110307
  Transmission Date: 20111010
  Serious: Yes (Hospitalization, Other)
  Sender: FDA-Public Use
  Company Number: US-BAYER-201035772NA

PATIENT
  Age: 31 Year
  Sex: Female
  Weight: 107.48 kg

DRUGS (13)
  1. COUMADIN [Concomitant]
  2. BCP (NOS) [Concomitant]
  3. SOLU-MEDROL [Concomitant]
  4. YAZ [Suspect]
     Indication: PRODUCT USED FOR UNKNOWN INDICATION
     Dates: start: 20040101, end: 20091024
  5. EFFEXOR XR [Concomitant]
     Dosage: 75 MG, UNK
  6. AMBIEN [Concomitant]
     Dosage: 10 MG, HS
     Route: 048
  7. XANAX [Concomitant]
     Dosage: 0.25 MG, TID
     Route: 048
  8. YASMIN [Suspect]
     Indication: PRODUCT USED FOR UNKNOWN INDICATION
     Dates: start: 20040101, end: 20091024
  9. KEPPRA XL [Concomitant]
     Dosage: 750 MG, QD
     Route: 048
  10. TOPAMAX [Concomitant]
     Dosage: 50 MG, QD
     Route: 048
  11. TOPAMAX [Concomitant]
     Dosage: 75 MG, HS
     Route: 048
  12. FOLGARD RX [Concomitant]
     Dosage: 60 MG, QD
     Route: 048
  13. PERCOCET [Concomitant]

REACTIONS (3)
  - CEREBROVASCULAR ACCIDENT [None]
  - CHOLECYSTITIS ACUTE [None]
  - GALLBLADDER DISORDER [None]
